FAERS Safety Report 5095706-8 (Version None)
Quarter: 2006Q3

REPORT INFORMATION
  Report Type: 
  Country: None (occurrence: None)
  Receive Date: 20060731
  Receipt Date: 20060414
  Transmission Date: 20061208
  Serious: No
  Sender: FDA-Public Use
  Company Number: 2006PV012138

PATIENT
  Age: 56 Year
  Sex: Female
  Weight: 94.3482 kg

DRUGS (3)
  1. BYETTA [Suspect]
     Indication: DIABETES MELLITUS NON-INSULIN-DEPENDENT
     Dosage: 5 MCG; BID; SC
     Route: 058
     Dates: start: 20060401
  2. LANTUS [Concomitant]
  3. GLYBURIDE AND METFORMIN HCL [Concomitant]

REACTIONS (3)
  - BLOOD GLUCOSE DECREASED [None]
  - HOT FLUSH [None]
  - HYPERHIDROSIS [None]
